FAERS Safety Report 12678804 (Version 5)
Quarter: 2024Q2

REPORT INFORMATION
  Report Type: Spontaneous
  Country: IN (occurrence: IN)
  Receive Date: 20160824
  Receipt Date: 20240411
  Transmission Date: 20240716
  Serious: Yes (Death, Other)
  Sender: FDA-Public Use
  Company Number: IN-CIPLA LTD.-2016IN17573

PATIENT

DRUGS (4)
  1. CETIRIZINE HYDROCHLORIDE [Suspect]
     Active Substance: CETIRIZINE HYDROCHLORIDE
     Indication: Hypersensitivity
     Dosage: 10 MG, 1 TABLET IN MORNING
     Route: 065
  2. GLUCONORM [METFORMIN HYDROCHLORIDE] [Concomitant]
     Indication: Diabetes mellitus
     Dosage: 1 G, QD, AFTER DINNER
     Route: 048
  3. TELVAS [Concomitant]
     Indication: Hypertension
     Dosage: 40 MG, QD, AFTER BREAKFAST
     Route: 065
  4. MINERALS\VITAMINS [Concomitant]
     Active Substance: MINERALS\VITAMINS
     Indication: Product used for unknown indication
     Dosage: UNK, QD, AFTER BREAKFAST
     Route: 065

REACTIONS (3)
  - Blood homocysteine increased [Unknown]
  - Glaucoma [Fatal]
  - Adverse event [Fatal]

NARRATIVE: CASE EVENT DATE: 20160817
